FAERS Safety Report 19573750 (Version 3)
Quarter: 2021Q3

REPORT INFORMATION
  Report Type: Report from Study
  Country: ES (occurrence: ES)
  Receive Date: 20210717
  Receipt Date: 20210825
  Transmission Date: 20211014
  Serious: Yes (Hospitalization, Other)
  Sender: FDA-Public Use
  Company Number: ES-TAKEDA-2021TUS042035

PATIENT
  Age: 53 Year
  Sex: Male

DRUGS (16)
  1. HIDROFEROL [Concomitant]
     Active Substance: CALCIFEDIOL
     Indication: OSTEOPOROSIS
     Dosage: 0.26 UNK, Q2WEEKS, (0.266 CAPS)
     Route: 065
  2. AMOXICILLIN/CLAVULANIC ACID [Concomitant]
     Active Substance: AMOXICILLIN\CLAVULANIC ACID
     Indication: CHOLANGITIS ACUTE
     Dosage: 875 MILLIGRAM, TID
     Route: 048
     Dates: start: 20200625
  3. TEDUGLUTIDE [Suspect]
     Active Substance: TEDUGLUTIDE
     Dosage: UNK
     Route: 065
     Dates: start: 20200626
  4. PHYTOMENADIONE [Concomitant]
     Active Substance: PHYTONADIONE
     Indication: PROTHROMBIN TIME PROLONGED
     Dosage: 10 MILLIGRAM, QD
     Route: 042
     Dates: start: 20200621, end: 20200625
  5. TEDUGLUTIDE [Suspect]
     Active Substance: TEDUGLUTIDE
     Dosage: UNK
     Route: 065
     Dates: start: 20200626
  6. GEMFIBROZILO [Concomitant]
     Active Substance: GEMFIBROZIL
     Indication: DYSLIPIDAEMIA
     Dosage: 600 MILLIGRAM, QD
     Route: 065
  7. TEDUGLUTIDE [Suspect]
     Active Substance: TEDUGLUTIDE
     Dosage: UNK
     Route: 065
     Dates: start: 20200626
  8. OPTOVITE B12 [Concomitant]
     Active Substance: CYANOCOBALAMIN
     Indication: VITAMIN B12 DEFICIENCY
     Dosage: 1 DOSAGE FORM, MONTHLY
     Route: 030
     Dates: start: 20190919
  9. ADIRO [Concomitant]
     Active Substance: ASPIRIN
     Indication: VASCULAR STENT THROMBOSIS
     Dosage: 100 MILLIGRAM, QD
     Route: 048
     Dates: start: 20190226
  10. TEDUGLUTIDE [Suspect]
     Active Substance: TEDUGLUTIDE
     Indication: SHORT-BOWEL SYNDROME
     Dosage: 3.6 MILLIGRAM, QD
     Route: 065
     Dates: start: 20190130, end: 20210127
  11. TEDUGLUTIDE [Suspect]
     Active Substance: TEDUGLUTIDE
     Dosage: UNK
     Route: 065
     Dates: start: 20200626
  12. TEDUGLUTIDE [Suspect]
     Active Substance: TEDUGLUTIDE
     Indication: SHORT-BOWEL SYNDROME
     Dosage: 3.6 MILLIGRAM, QD
     Route: 065
     Dates: start: 20190130, end: 20210127
  13. TEDUGLUTIDE [Suspect]
     Active Substance: TEDUGLUTIDE
     Indication: SHORT-BOWEL SYNDROME
     Dosage: 3.6 MILLIGRAM, QD
     Route: 065
     Dates: start: 20190130, end: 20210127
  14. TEDUGLUTIDE [Suspect]
     Active Substance: TEDUGLUTIDE
     Indication: SHORT-BOWEL SYNDROME
     Dosage: 3.6 MILLIGRAM, QD
     Route: 065
     Dates: start: 20190130, end: 20210127
  15. DELTIUS [Concomitant]
     Active Substance: CHOLECALCIFEROL
     Indication: VITAMIN D DEFICIENCY
     Dosage: 25000 INTERNATIONAL UNIT, 1/WEEK
     Route: 048
     Dates: start: 20201111
  16. ERTAPENEM. [Concomitant]
     Active Substance: ERTAPENEM SODIUM
     Indication: CHOLANGITIS ACUTE
     Dosage: 1 GRAM, QD
     Route: 042
     Dates: start: 20200621, end: 20200625

REACTIONS (3)
  - Anaemia [Recovered/Resolved]
  - Abdominal pain [Recovered/Resolved]
  - Ampullary polyp [Recovered/Resolved]

NARRATIVE: CASE EVENT DATE: 20210120
